FAERS Safety Report 12783158 (Version 1)
Quarter: 2016Q3

REPORT INFORMATION
  Report Type: Spontaneous
  Country: US (occurrence: US)
  Receive Date: 20160927
  Receipt Date: 20160927
  Transmission Date: 20161109
  Serious: Yes (Hospitalization, Other)
  Sender: FDA-Public Use
  Company Number: US-BEH-ANTI-D/01/01/LIT

PATIENT
  Age: 15 Year
  Sex: Female

DRUGS (1)
  1. HUMAN ANTI-D IMMUNOGLOBULIN [Suspect]
     Active Substance: HUMAN RHO(D) IMMUNE GLOBULIN
     Indication: THROMBOCYTOPENIA
     Route: 042

REACTIONS (11)
  - Haemoglobinuria [Unknown]
  - Tachycardia [None]
  - Hyperhidrosis [Unknown]
  - Chest pain [Unknown]
  - Chills [Unknown]
  - Back pain [Unknown]
  - Coombs positive haemolytic anaemia [Unknown]
  - Pallor [Unknown]
  - Haemoglobin decreased [Unknown]
  - Haptoglobin decreased [Unknown]
  - Intravascular haemolysis [Recovered/Resolved]
